FAERS Safety Report 8647946 (Version 2)
Quarter: 2012Q4

REPORT INFORMATION
  Report Type: 
  Country: US (occurrence: US)
  Receive Date: 20120703
  Receipt Date: 20120828
  Transmission Date: 20130627
  Serious: Yes (Other)
  Sender: FDA-Public Use
  Company Number: US-PFIZER INC-2012156132

PATIENT
  Age: 48 Year
  Sex: Female

DRUGS (16)
  1. LYRICA [Suspect]
     Dosage: 100 mg, 2x/day
     Route: 048
  2. SAVELLA [Suspect]
     Dosage: UNK
  3. HYDROCODONE [Suspect]
     Dosage: UNK
  4. METHOTREXATE [Concomitant]
     Dosage: UNK
  5. ROPINIROLE [Concomitant]
     Dosage: UNK
  6. LISINOPRIL [Concomitant]
     Dosage: UNK
  7. MAXALT [Concomitant]
     Dosage: UNK
  8. LORTAB [Concomitant]
     Dosage: UNK
  9. ZANAFLEX [Concomitant]
     Dosage: UNK
  10. CEREFOLIN [Concomitant]
  11. SAM-E [Concomitant]
     Dosage: UNK
  12. CO-Q-10 [Concomitant]
     Dosage: UNK
  13. HYDROCHLOROTHIAZIDE [Concomitant]
     Dosage: UNK
  14. ZEGERID [Concomitant]
     Dosage: UNK
  15. FLECTOR [Concomitant]
     Dosage: UNK
  16. ALPHA LIPOIC ACID [Concomitant]
     Dosage: UNK

REACTIONS (10)
  - Cognitive disorder [Unknown]
  - Memory impairment [Unknown]
  - Systemic lupus erythematosus [Unknown]
  - Depression [Not Recovered/Not Resolved]
  - Malaise [Not Recovered/Not Resolved]
  - Fatigue [Not Recovered/Not Resolved]
  - Fall [Unknown]
  - Gait disturbance [Unknown]
  - Pain [Unknown]
  - Fibromyalgia [Unknown]
